FAERS Safety Report 18141676 (Version 1)
Quarter: 2020Q3

REPORT INFORMATION
  Report Type: Report from Study
  Country: IT (occurrence: IT)
  Receive Date: 20200812
  Receipt Date: 20200812
  Transmission Date: 20201103
  Serious: Yes (Death, Hospitalization)
  Sender: FDA-Public Use
  Company Number: IT-CELGENEUS-ITA-20200801533

PATIENT
  Age: 72 Year
  Sex: Male
  Weight: 70 kg

DRUGS (2)
  1. LENALIDOMIDE [Suspect]
     Active Substance: LENALIDOMIDE
     Indication: ACUTE MYELOID LEUKAEMIA
     Dosage: 13 CYCLES ADMINISTERED
     Route: 048
     Dates: start: 20200715, end: 20200725
  2. AZACITIDINE. [Suspect]
     Active Substance: AZACITIDINE
     Indication: ACUTE MYELOID LEUKAEMIA
     Dosage: 13 CYCLES ADMINISTERED
     Route: 065
     Dates: start: 20200715, end: 20200721

REACTIONS (2)
  - Pancytopenia [Not Recovered/Not Resolved]
  - Infection [Fatal]

NARRATIVE: CASE EVENT DATE: 20200726
